FAERS Safety Report 26007575 (Version 3)
Quarter: 2025Q4

REPORT INFORMATION
  Report Type: Report from Study
  Country: AE (occurrence: AE)
  Receive Date: 20251106
  Receipt Date: 20251209
  Transmission Date: 20260118
  Serious: Yes (Death)
  Sender: ELI LILLY AND COMPANY
  Company Number: AE-ELI_LILLY_AND_COMPANY-AE202511002324

PATIENT
  Age: 66 Year
  Sex: Female

DRUGS (1)
  1. VERZENIO [Suspect]
     Active Substance: ABEMACICLIB
     Indication: Breast cancer metastatic
     Dosage: 150 MG, BID
     Route: 048
     Dates: start: 20250612, end: 202508

REACTIONS (1)
  - Death [Fatal]

NARRATIVE: CASE EVENT DATE: 20250901
